FAERS Safety Report 25293759 (Version 5)
Quarter: 2025Q4

REPORT INFORMATION
  Report Type: Spontaneous
  Country: US (occurrence: US)
  Receive Date: 20250510
  Receipt Date: 20251018
  Transmission Date: 20260118
  Serious: No
  Sender: SANOFI AVENTIS
  Company Number: US-SA-2025SA124943

PATIENT
  Age: 44 Year
  Sex: Female

DRUGS (2)
  1. DUPIXENT [Suspect]
     Active Substance: DUPILUMAB
     Indication: Dermatitis atopic
     Dosage: 300 MG, QOW
     Route: 058
     Dates: start: 202504
  2. DUPIXENT [Suspect]
     Active Substance: DUPILUMAB
     Indication: Eczema

REACTIONS (16)
  - Muscle spasms [Not Recovered/Not Resolved]
  - Decreased appetite [Not Recovered/Not Resolved]
  - Menstrual disorder [Unknown]
  - Dysmenorrhoea [Unknown]
  - Mood swings [Unknown]
  - Panic attack [Unknown]
  - Crying [Unknown]
  - Condition aggravated [Unknown]
  - Dyspnoea [Unknown]
  - Abdominal distension [Unknown]
  - Flatulence [Unknown]
  - Dermatitis atopic [Unknown]
  - Insomnia [Unknown]
  - Diarrhoea [Unknown]
  - Gastritis [Unknown]
  - Abdominal pain upper [Unknown]

NARRATIVE: CASE EVENT DATE: 20250101
